FAERS Safety Report 18505818 (Version 1)
Quarter: 2020Q4

REPORT INFORMATION
  Report Type: Report from Study
  Country: US (occurrence: US)
  Receive Date: 20201116
  Receipt Date: 20201116
  Transmission Date: 20210114
  Serious: Yes (Hospitalization)
  Sender: FDA-Public Use
  Company Number: US-GILEAD-2020-0503895

PATIENT
  Age: 75 Year
  Sex: Female

DRUGS (20)
  1. ADEMPAS [Concomitant]
     Active Substance: RIOCIGUAT
  2. ALBUTEROL HFA [Concomitant]
     Active Substance: ALBUTEROL SULFATE
  3. PLAVIX [Concomitant]
     Active Substance: CLOPIDOGREL BISULFATE
  4. DOXAZOSIN [Concomitant]
     Active Substance: DOXAZOSIN MESYLATE
  5. ROSUVASTATIN. [Concomitant]
     Active Substance: ROSUVASTATIN
  6. VIT D [Concomitant]
     Active Substance: VITAMIN D NOS
  7. AMBRISENTAN [Suspect]
     Active Substance: AMBRISENTAN
     Indication: PULMONARY ARTERIAL HYPERTENSION
     Dosage: 10 MG, QD
     Route: 065
     Dates: start: 20140424
  8. CLOPIDOGREL [Concomitant]
     Active Substance: CLOPIDOGREL BISULFATE
  9. FUROSEMIDE. [Concomitant]
     Active Substance: FUROSEMIDE
  10. STIOLTO RESPIMAT [Concomitant]
     Active Substance: OLODATEROL HYDROCHLORIDE\TIOTROPIUM BROMIDE MONOHYDRATE
  11. BISOPROL [Concomitant]
     Active Substance: BISOPROLOL FUMARATE
  12. CHLORTHALIDON [Concomitant]
     Active Substance: CHLORTHALIDONE
  13. OXYCODONE [Concomitant]
     Active Substance: OXYCODONE
  14. AMLODIPINE [Concomitant]
     Active Substance: AMLODIPINE BESYLATE
  15. AZATHIOPRINE. [Concomitant]
     Active Substance: AZATHIOPRINE
  16. PROAIR HFA [Concomitant]
     Active Substance: ALBUTEROL SULFATE
  17. ASPIRIN (E.C.) [Concomitant]
     Active Substance: ASPIRIN
  18. GABAPENTIN. [Concomitant]
     Active Substance: GABAPENTIN
  19. LEVOCETIRIZINE [Concomitant]
     Active Substance: LEVOCETIRIZINE
  20. VITAMIN B12 [Concomitant]
     Active Substance: CYANOCOBALAMIN

REACTIONS (1)
  - COVID-19 [Not Recovered/Not Resolved]
